FAERS Safety Report 21683566 (Version 1)
Quarter: 2022Q4

REPORT INFORMATION
  Report Type: Spontaneous
  Country: BR (occurrence: BR)
  Receive Date: 20221205
  Receipt Date: 20221205
  Transmission Date: 20230113
  Serious: Yes (Other)
  Sender: FDA-Public Use
  Company Number: BR-AMERICAN REGENT INC-2022003412

PATIENT
  Sex: Female
  Weight: 68 kg

DRUGS (10)
  1. VENOFER [Suspect]
     Active Substance: IRON SUCROSE
     Indication: Anaemia
     Dosage: 100 MILLIGRAM IN UNSPECIFIED DILUTION EVERY OTHER DAY, 5 ADMINISTRATIONS OF 100 MG (1 AMPOULE) EACH
     Dates: start: 2020, end: 2020
  2. VENOFER [Suspect]
     Active Substance: IRON SUCROSE
     Dosage: 100 MILLIGRAM IN UNSPECIFIED DILUTION EVERY OTHER DAY, 5 ADMINISTRATIONS OF 100 MG (1 AMPOULE) EACH
     Dates: start: 2020, end: 2020
  3. VENOFER [Suspect]
     Active Substance: IRON SUCROSE
     Dosage: 100 MILLIGRAM IN UNSPECIFIED DILUTION EVERY OTHER DAY, 5 ADMINISTRATIONS OF 100 MG (1 AMPOULE) EACH
     Dates: start: 2020, end: 2020
  4. VENOFER [Suspect]
     Active Substance: IRON SUCROSE
     Dosage: 100 MILLIGRAM IN UNSPECIFIED DILUTION EVERY OTHER DAY, 5 ADMINISTRATIONS OF 100 MG (1 AMPOULE) EACH
     Dates: start: 2020, end: 2020
  5. VENOFER [Suspect]
     Active Substance: IRON SUCROSE
     Dosage: 100 MILLIGRAM IN UNSPECIFIED DILUTION EVERY OTHER DAY, 5 ADMINISTRATIONS OF 100 MG (1 AMPOULE) EACH
     Dates: start: 2020, end: 2020
  6. VENOFER [Suspect]
     Active Substance: IRON SUCROSE
     Dosage: 100 MILLIGRAM DILUTED IN 200 ML SALINE SOLUTION ON ALTERNATE DAYS
     Dates: start: 20221112, end: 20221112
  7. VENOFER [Suspect]
     Active Substance: IRON SUCROSE
     Dosage: 100 MILLIGRAM DILUTED IN 200 ML SALINE SOLUTION ON ALTERNATE DAYS
     Dates: start: 20221114, end: 20221114
  8. VENOFER [Suspect]
     Active Substance: IRON SUCROSE
     Dosage: 100 MILLIGRAM DILUTED IN 200 ML SALINE SOLUTION ON ALTERNATE DAYS
     Dates: start: 20221116, end: 20221116
  9. ATENOLOL [Concomitant]
     Active Substance: ATENOLOL
     Indication: Arrhythmia
     Dosage: 1 DOSAGE FORMS,1 IN 1 D (SINCE MANY YEARS AGO)
     Route: 048
  10. BENICAR HCT [Concomitant]
     Active Substance: HYDROCHLOROTHIAZIDE\OLMESARTAN MEDOXOMIL
     Indication: Hypertension
     Dosage: 1 DOSAGE FORMS,1 IN 1 D (SINCE MANY YEARS AGO)
     Route: 048
     Dates: end: 202211

REACTIONS (8)
  - Vein rupture [Recovered/Resolved]
  - Dysstasia [Not Recovered/Not Resolved]
  - Somnolence [Not Recovered/Not Resolved]
  - Fatigue [Not Recovered/Not Resolved]
  - Infusion site haematoma [Not Recovered/Not Resolved]
  - Dizziness [Not Recovered/Not Resolved]
  - Incorrect product administration duration [Unknown]
  - Product preparation issue [Unknown]

NARRATIVE: CASE EVENT DATE: 20200101
